FAERS Safety Report 12520680 (Version 2)
Quarter: 2016Q3

REPORT INFORMATION
  Report Type: Spontaneous
  Country: US (occurrence: US)
  Receive Date: 20160701
  Receipt Date: 20160905
  Transmission Date: 20161109
  Serious: Yes (Other)
  Sender: FDA-Public Use
  Company Number: US-TEVA-672224USA

PATIENT
  Age: 55 Year
  Sex: Female

DRUGS (5)
  1. HEART BURN MEDICINE [Concomitant]
     Indication: DYSPEPSIA
  2. VITAMIN D [Concomitant]
     Active Substance: CHOLECALCIFEROL
  3. LIPITOR [Concomitant]
     Active Substance: ATORVASTATIN CALCIUM
  4. ZECUITY [Suspect]
     Active Substance: SUMATRIPTAN SUCCINATE
     Indication: HEADACHE
     Route: 062
  5. ESTROGEN [Concomitant]
     Active Substance: ESTRONE\SUS SCROFA OVARY

REACTIONS (14)
  - Application site discolouration [Recovered/Resolved]
  - Application site urticaria [Recovered/Resolved]
  - Application site erosion [Recovered/Resolved]
  - Application site pruritus [Recovered/Resolved]
  - Application site pain [Recovered/Resolved]
  - Application site warmth [Recovered/Resolved]
  - Application site erythema [Recovered/Resolved]
  - Product adhesion issue [Recovered/Resolved]
  - Incorrect drug administration duration [Recovered/Resolved]
  - Application site scar [Recovered/Resolved]
  - Application site irritation [Recovered/Resolved]
  - Application site burn [Recovered/Resolved]
  - Application site vesicles [Recovered/Resolved]
  - Application site discomfort [Recovered/Resolved]

NARRATIVE: CASE EVENT DATE: 201605
